FAERS Safety Report 22598271 (Version 2)
Quarter: 2023Q4

REPORT INFORMATION
  Report Type: Report from Study
  Country: BR (occurrence: BR)
  Receive Date: 20230614
  Receipt Date: 20231129
  Transmission Date: 20240110
  Serious: Yes (Life-Threatening, Hospitalization, Other)
  Sender: FDA-Public Use
  Company Number: BR-JNJFOC-20230620418

PATIENT
  Age: 62 Year
  Sex: Male

DRUGS (2)
  1. SIMPONI [Suspect]
     Active Substance: GOLIMUMAB
     Indication: Rheumatoid arthritis
     Route: 058
     Dates: start: 20161219
  2. SIMPONI [Suspect]
     Active Substance: GOLIMUMAB

REACTIONS (11)
  - Haematological infection [Unknown]
  - Endocarditis [Unknown]
  - Renal impairment [Unknown]
  - Kidney infection [Unknown]
  - Gastrointestinal infection [Unknown]
  - Foot deformity [Unknown]
  - Hyperkeratosis [Unknown]
  - Limb injury [Unknown]
  - Device breakage [Unknown]
  - Viral infection [Not Recovered/Not Resolved]
  - Anaemia [Unknown]

NARRATIVE: CASE EVENT DATE: 20230101
